FAERS Safety Report 17959149 (Version 1)
Quarter: 2020Q2

REPORT INFORMATION
  Report Type: Spontaneous
  Country: CN (occurrence: CN)
  Receive Date: 20200630
  Receipt Date: 20200630
  Transmission Date: 20200714
  Serious: Yes (Hospitalization, Other)
  Sender: FDA-Public Use
  Company Number: CN-BAXTER-2020BAX013156

PATIENT
  Age: 46 Year
  Sex: Female
  Weight: 47 kg

DRUGS (12)
  1. 0.9% SODIUM CHLORIDE INJECTION [Suspect]
     Active Substance: SODIUM CHLORIDE
     Indication: MEDICATION DILUTION
     Dosage: FIRST 5 CYCLES CHEMOTHERAPY, 0. 9% + ENDOXAN
     Route: 041
  2. 0.9% SODIUM CHLORIDE INJECTION [Suspect]
     Active Substance: SODIUM CHLORIDE
     Dosage: FIRST 5 CYCLES CHEMOTHERAPY, 0. 9% NS + DOCETAXEL INJECTION
     Route: 041
  3. ENDOXAN [Suspect]
     Active Substance: CYCLOPHOSPHAMIDE
     Indication: CHEMOTHERAPY
     Dosage: FIRST 5 CYCLES OF CHEMOTHERAPY WITH ENDOXAN+ 0.9% NORMAL SALINE (NS)
     Route: 041
  4. 0.9% SODIUM CHLORIDE INJECTION [Suspect]
     Active Substance: SODIUM CHLORIDE
     Dosage: FIRST 5 CYCLES CHEMOTHERAPY,  0.9% NS + EPIRUBICIN
     Route: 041
  5. 0.9% SODIUM CHLORIDE INJECTION [Suspect]
     Active Substance: SODIUM CHLORIDE
     Dosage: 6TH CYCLE OF CHEMOTHERAPY ENDOXAN WITH 0.9%NS 100ML
     Route: 041
     Dates: start: 20200604, end: 20200604
  6. AOMINGRUN [Suspect]
     Active Substance: DOCETAXEL
     Indication: PALLIATIVE CARE
     Dosage: 6TH CYCLE OF CHEMOTHERAPY DOCETAXEL+ 0.9% NS 200ML
     Route: 041
     Dates: start: 20200604, end: 20200604
  7. AOMINGRUN [Suspect]
     Active Substance: DOCETAXEL
     Indication: CHEMOTHERAPY
     Dosage: FIRST 5 CYCLES OF CHEMOTHERAPY, DOCETAXEL+ 0.9% NS
     Route: 041
  8. ENDOXAN [Suspect]
     Active Substance: CYCLOPHOSPHAMIDE
     Indication: PALLIATIVE CARE
     Dosage: 6TH CYCLE OF ENDOXAN+ 0.9% NS 100ML
     Route: 041
     Dates: start: 20200604, end: 20200604
  9. EPIRUBICIN HYDROCHLORIDE. [Suspect]
     Active Substance: EPIRUBICIN HYDROCHLORIDE
     Indication: PALLIATIVE CARE
     Dosage: FIRST 5 CYCLES OF CHEMOTHERAPY, 0. 9% NS + EPIRUBICIN
     Route: 041
  10. EPIRUBICIN HYDROCHLORIDE. [Suspect]
     Active Substance: EPIRUBICIN HYDROCHLORIDE
     Indication: CHEMOTHERAPY
     Dosage: 6TH CYCLE OF CHEMOTHERAPY EPIRUBICIN HYDROCHLORIDE + 0.9%NS 30ML
     Route: 041
     Dates: start: 20200604, end: 20200604
  11. 0.9% SODIUM CHLORIDE INJECTION [Suspect]
     Active Substance: SODIUM CHLORIDE
     Dosage: 6TH CYCLE OF CHEMOTHERAPY EPIRUBICIN WITH 0.9%NS 30ML
     Route: 041
     Dates: start: 20200604, end: 20200604
  12. 0.9% SODIUM CHLORIDE INJECTION [Suspect]
     Active Substance: SODIUM CHLORIDE
     Dosage: 6TH CYCLE OF CHEMOTHERAPY DOCETAXEL + 0.9%NS 200ML
     Route: 041
     Dates: start: 20200604, end: 20200604

REACTIONS (2)
  - Leukopenia [Recovered/Resolved]
  - Leukopenia [Recovered/Resolved]

NARRATIVE: CASE EVENT DATE: 20200608
